FAERS Safety Report 7367726-1 (Version None)
Quarter: 2011Q1

REPORT INFORMATION
  Report Type: 
  Country: None (occurrence: None)
  Receive Date: 20110307
  Receipt Date: 20110224
  Transmission Date: 20110831
  Serious: Yes (Other)
  Sender: FDA-Public Use
  Company Number: 2011SP007060

PATIENT
  Age: 69 Year
  Sex: Male

DRUGS (5)
  1. ZOLPIDEM TARTRATE [Concomitant]
  2. PROMETHAZINE HYDROCHLORIDE [Concomitant]
  3. REFLEX (MIRTAZAPINE /01293201/) [Suspect]
     Indication: DEPRESSION
     Dosage: 7.5 MG, ONCE, PO
     Route: 048
     Dates: start: 20110106, end: 20110107
  4. HYDROCHLORIDE HYDRATE [Concomitant]
  5. PAROXETINE HCL [Concomitant]

REACTIONS (4)
  - FALL [None]
  - DELIRIUM [None]
  - RIB FRACTURE [None]
  - CONTUSION [None]
